FAERS Safety Report 5225828-X (Version None)
Quarter: 2007Q1

REPORT INFORMATION
  Report Type: 
  Country: None (occurrence: None)
  Receive Date: 20070131
  Receipt Date: 20070131
  Transmission Date: 20070707
  Serious: Yes (Hospitalization)
  Sender: FDA-Public Use
  Company Number: None

PATIENT
  Age: 69 Year
  Sex: Female
  Weight: 101 kg

DRUGS (2)
  1. CLOPIDOGREL BISULFATE [Suspect]
     Dosage: 1 TAB DAILY PO
     Route: 048
  2. ASPIRIN [Suspect]
     Dosage: 1 TAB DAILY PO
     Route: 048

REACTIONS (5)
  - CHEST PAIN [None]
  - CONSTIPATION [None]
  - DIARRHOEA [None]
  - DYSPNOEA [None]
  - GASTROINTESTINAL HAEMORRHAGE [None]
